FAERS Safety Report 7609869 (Version 10)
Quarter: 2013Q1

REPORT INFORMATION
  Report Type: Spontaneous
  Country: CA (occurrence: CA)
  Receive Date: 20100928
  Receipt Date: 20130214
  Transmission Date: 20140127
  Serious: Yes (Death, Hospitalization, Other)
  Sender: FDA-Public Use
  Company Number: PHHY2010CA62187

PATIENT
  Age: 84 Year
  Sex: Female

DRUGS (5)
  1. EXJADE [Suspect]
     Indication: HAEMOLYTIC ANAEMIA
     Dosage: 1750 MG, QD
     Route: 048
     Dates: start: 200807
  2. EXJADE [Suspect]
     Dosage: 1750 MG
     Route: 048
     Dates: start: 20080808
  3. ASA [Concomitant]
     Dosage: 81 MG
  4. ASPIRIN [Concomitant]
     Dosage: 81 MG, QD
     Route: 048
  5. VITAMIN D [Concomitant]
     Route: 048

REACTIONS (16)
  - Death [Fatal]
  - Fall [Unknown]
  - Back pain [Unknown]
  - Myalgia [Unknown]
  - Haemoglobin decreased [Not Recovered/Not Resolved]
  - Serum ferritin increased [Recovered/Resolved]
  - Pelvic fracture [Unknown]
  - Dysgeusia [Unknown]
  - Chromaturia [Unknown]
  - Urine odour abnormal [Unknown]
  - Abnormal faeces [Unknown]
  - Pain in extremity [Unknown]
  - Local swelling [Unknown]
  - Fatigue [Recovering/Resolving]
  - Abdominal discomfort [Unknown]
  - Abdominal pain upper [Recovered/Resolved]
